FAERS Safety Report 21198870 (Version 1)
Quarter: 2022Q3

REPORT INFORMATION
  Report Type: Spontaneous
  Country: US (occurrence: None)
  Receive Date: 20220811
  Receipt Date: 20220811
  Transmission Date: 20221026
  Serious: Yes (Other)
  Sender: FDA-Public Use
  Company Number: 2022A276953

PATIENT
  Age: 28333 Day
  Sex: Female
  Weight: 97.5 kg

DRUGS (1)
  1. FARXIGA [Suspect]
     Active Substance: DAPAGLIFLOZIN PROPANEDIOL
     Indication: Renal impairment
     Route: 048
     Dates: start: 20220622, end: 20220628

REACTIONS (4)
  - Renal impairment [Unknown]
  - Pituitary-dependent Cushing^s syndrome [Unknown]
  - Vulvovaginal mycotic infection [Recovered/Resolved]
  - Intentional dose omission [Unknown]

NARRATIVE: CASE EVENT DATE: 20220628
